FAERS Safety Report 18580883 (Version 1)
Quarter: 2020Q4

REPORT INFORMATION
  Report Type: Spontaneous
  Country: RU (occurrence: RU)
  Receive Date: 20201204
  Receipt Date: 20201204
  Transmission Date: 20210114
  Serious: Yes (Hospitalization, Other)
  Sender: FDA-Public Use
  Company Number: RU-SA-2020SA344316

PATIENT

DRUGS (5)
  1. PERINEVA [Concomitant]
     Active Substance: PERINDOPRIL ERBUMINE
     Indication: HYPERTENSIVE HEART DISEASE
     Dosage: 4 MG
     Route: 048
     Dates: start: 20161116, end: 20190716
  2. METOPROLOL. [Concomitant]
     Active Substance: METOPROLOL
     Indication: MYOCARDIAL FIBROSIS
     Dosage: 100 MG
     Route: 048
     Dates: start: 20161116, end: 20190716
  3. ATORIS [Concomitant]
     Active Substance: ATORVASTATIN CALCIUM
     Indication: MYOCARDIAL FIBROSIS
     Dosage: 40 MG
     Route: 048
     Dates: start: 20161116, end: 20190716
  4. TOUJEO [Suspect]
     Active Substance: INSULIN GLARGINE
     Indication: TYPE 2 DIABETES MELLITUS
     Dosage: 32 IU
     Route: 058
     Dates: start: 20171115, end: 20190606
  5. ACECARDOL [Concomitant]
     Active Substance: ASPIRIN
     Indication: MYOCARDIAL FIBROSIS
     Dosage: 100 MG
     Route: 048
     Dates: start: 20161116, end: 20190716

REACTIONS (1)
  - Diabetic metabolic decompensation [Recovered/Resolved]

NARRATIVE: CASE EVENT DATE: 20181010
